FAERS Safety Report 7763153-3 (Version None)
Quarter: 2011Q3

REPORT INFORMATION
  Report Type: 
  Country: None (occurrence: None)
  Receive Date: 20110920
  Receipt Date: 20110910
  Transmission Date: 20111222
  Serious: No
  Sender: FDA-Public Use
  Company Number: PHHY2011AU82004

PATIENT
  Sex: Female

DRUGS (2)
  1. TASIGNA [Suspect]
     Dosage: UNK UKN, UNK
  2. WARFARIN SODIUM [Concomitant]
     Dosage: UNK UKN, UNK

REACTIONS (1)
  - PAIN IN EXTREMITY [None]
